FAERS Safety Report 9142324 (Version 3)
Quarter: 2014Q1

REPORT INFORMATION
  Report Type: Spontaneous
  Country: US (occurrence: US)
  Receive Date: 20130306
  Receipt Date: 20140211
  Transmission Date: 20141002
  Serious: Yes (Other)
  Sender: FDA-Public Use
  Company Number: US-AMGEN-USASP2013014674

PATIENT
  Age: 0 Day
  Sex: Female
  Weight: 3.12 kg

DRUGS (5)
  1. ENBREL [Suspect]
     Indication: PRODUCT USED FOR UNKNOWN INDICATION
     Dosage: 50 MG, QWK
     Route: 064
     Dates: start: 20090101
  2. PRENATAL VITAMINS                  /02014401/ [Concomitant]
     Dosage: 1 DAILY
     Route: 064
     Dates: start: 20120101
  3. VITAMIN B [Concomitant]
     Dosage: 1 DAILY
     Route: 064
     Dates: start: 20000101
  4. CALCIUM [Concomitant]
     Dosage: 1 DAILY
     Route: 064
     Dates: start: 20000101
  5. FISH OIL [Concomitant]
     Dosage: 2 DAILY
     Route: 064
     Dates: start: 20130201

REACTIONS (2)
  - White blood cell count increased [Recovered/Resolved]
  - Exposure during breast feeding [Unknown]
